FAERS Safety Report 6917319-2 (Version None)
Quarter: 2010Q3

REPORT INFORMATION
  Report Type: 
  Country: None (occurrence: None)
  Receive Date: 20100805
  Receipt Date: 20100721
  Transmission Date: 20110219
  Serious: Yes (Hospitalization)
  Sender: FDA-Public Use
  Company Number: 648649

PATIENT
  Age: 70 Year
  Sex: Male
  Weight: 85 kg

DRUGS (36)
  1. LEUCOVORIN CALCIUM [Suspect]
     Indication: COLORECTAL CANCER STAGE I
     Dosage: SEE IMAGE
     Route: 042
     Dates: start: 20061115, end: 20061115
  2. LEUCOVORIN CALCIUM [Suspect]
     Indication: COLORECTAL CANCER STAGE I
     Dosage: SEE IMAGE
     Route: 042
     Dates: start: 20061129, end: 20061129
  3. LEUCOVORIN CALCIUM [Suspect]
     Indication: COLORECTAL CANCER STAGE I
     Dosage: SEE IMAGE
     Route: 042
     Dates: start: 20061227, end: 20061227
  4. LEUCOVORIN CALCIUM [Suspect]
     Indication: COLORECTAL CANCER STAGE I
     Dosage: SEE IMAGE
     Route: 042
     Dates: start: 20070117, end: 20070117
  5. LEUCOVORIN CALCIUM [Suspect]
     Indication: COLORECTAL CANCER STAGE I
     Dosage: SEE IMAGE
     Route: 042
     Dates: start: 20070131, end: 20070131
  6. FLUOROURACIL [Suspect]
     Indication: COLORECTAL CANCER STAGE I
     Dosage: SEE IMAGE
     Route: 040
     Dates: start: 20061115, end: 20061117
  7. FLUOROURACIL [Suspect]
     Indication: COLORECTAL CANCER STAGE I
     Dosage: SEE IMAGE
     Route: 040
     Dates: start: 20061115, end: 20061117
  8. FLUOROURACIL [Suspect]
     Indication: COLORECTAL CANCER STAGE I
     Dosage: SEE IMAGE
     Route: 040
     Dates: start: 20061129, end: 20061201
  9. FLUOROURACIL [Suspect]
     Indication: COLORECTAL CANCER STAGE I
     Dosage: SEE IMAGE
     Route: 040
     Dates: start: 20061227, end: 20061229
  10. FLUOROURACIL [Suspect]
     Indication: COLORECTAL CANCER STAGE I
     Dosage: SEE IMAGE
     Route: 040
     Dates: start: 20061227, end: 20061229
  11. FLUOROURACIL [Suspect]
     Indication: COLORECTAL CANCER STAGE I
     Dosage: SEE IMAGE
     Route: 040
     Dates: start: 20070117, end: 20070119
  12. FLUOROURACIL [Suspect]
     Indication: COLORECTAL CANCER STAGE I
     Dosage: SEE IMAGE
     Route: 040
     Dates: start: 20070117, end: 20070119
  13. FLUOROURACIL [Suspect]
     Indication: COLORECTAL CANCER STAGE I
     Dosage: SEE IMAGE
     Route: 040
     Dates: start: 20070131, end: 20070131
  14. FLUOROURACIL [Suspect]
     Indication: COLORECTAL CANCER STAGE I
     Dosage: SEE IMAGE
     Route: 040
     Dates: start: 20070131, end: 20070131
  15. ELOXATIN [Suspect]
     Indication: COLORECTAL CANCER STAGE I
     Dosage: SEE IMAGE
     Route: 041
     Dates: start: 20061115, end: 20061115
  16. ELOXATIN [Suspect]
     Indication: COLORECTAL CANCER STAGE I
     Dosage: SEE IMAGE
     Route: 041
     Dates: start: 20061129, end: 20061129
  17. ELOXATIN [Suspect]
     Indication: COLORECTAL CANCER STAGE I
     Dosage: SEE IMAGE
     Route: 041
     Dates: start: 20061127, end: 20061227
  18. ELOXATIN [Suspect]
     Indication: COLORECTAL CANCER STAGE I
     Dosage: SEE IMAGE
     Route: 041
     Dates: start: 20070117, end: 20070117
  19. ELOXATIN [Suspect]
     Indication: COLORECTAL CANCER STAGE I
     Dosage: SEE IMAGE
     Route: 041
     Dates: start: 20070131, end: 20070131
  20. AVASTIN [Suspect]
     Indication: COLORECTAL CANCER STAGE I
     Dosage: SEE IMAGE
     Route: 042
     Dates: start: 20061115, end: 20061115
  21. AVASTIN [Suspect]
     Indication: COLORECTAL CANCER STAGE I
     Dosage: SEE IMAGE
     Route: 042
     Dates: start: 20061129, end: 20061129
  22. AVASTIN [Suspect]
     Indication: COLORECTAL CANCER STAGE I
     Dosage: SEE IMAGE
     Route: 042
     Dates: start: 20061227, end: 20061227
  23. AVASTIN [Suspect]
     Indication: COLORECTAL CANCER STAGE I
     Dosage: SEE IMAGE
     Route: 042
     Dates: start: 20070117, end: 20070117
  24. AVASTIN [Suspect]
     Indication: COLORECTAL CANCER STAGE I
     Dosage: SEE IMAGE
     Route: 042
     Dates: start: 20070131, end: 20070131
  25. APREPITANT [Concomitant]
  26. FENTANYL CITRATE INJECTION USP (FENTANYL CITRATE) [Concomitant]
  27. TAMSULOSIN HYDROCHLORIDE [Concomitant]
  28. CHLORPROMAZINE HCL [Concomitant]
  29. DOCUSATE SODIUM [Concomitant]
  30. HYDROMORPONE HCL INJECTION, USP (HYDROMORPHONE HYDROCLORIDE) [Concomitant]
  31. KYTRILL /01178101/ [Concomitant]
  32. MARINOL [Concomitant]
  33. POLYETHYLENE GLYCOL [Concomitant]
  34. PROMETHAZINE HCL INJECTION, USP (PROMETHAZINE HYDROCHLORIDE) [Concomitant]
  35. NEXIUM [Concomitant]
  36. INVESTIGATOR DRUG [Concomitant]

REACTIONS (4)
  - CYSTITIS [None]
  - DEHYDRATION [None]
  - NEUTROPENIA [None]
  - URINARY TRACT INFECTION PSEUDOMONAL [None]
